FAERS Safety Report 19308087 (Version 2)
Quarter: 2021Q2

REPORT INFORMATION
  Report Type: Spontaneous
  Country: CN (occurrence: CN)
  Receive Date: 20210526
  Receipt Date: 20210531
  Transmission Date: 20210717
  Serious: Yes (Death, Hospitalization, Other)
  Sender: FDA-Public Use
  Company Number: CN-ASTRAZENECA-2021A465885

PATIENT
  Age: 45 Year
  Sex: Female
  Weight: 80 kg

DRUGS (8)
  1. OLAPARIB. [Suspect]
     Active Substance: OLAPARIB
     Indication: OVARIAN CANCER
     Route: 048
     Dates: start: 201703, end: 20181115
  2. OLAPARIB. [Suspect]
     Active Substance: OLAPARIB
     Indication: OVARIAN CANCER
     Route: 048
     Dates: start: 20181115, end: 2019
  3. OLAPARIB. [Suspect]
     Active Substance: OLAPARIB
     Indication: OVARIAN CANCER
     Route: 048
     Dates: start: 2017, end: 201712
  4. NIRAPARIB [Suspect]
     Active Substance: NIRAPARIB
     Indication: OVARIAN CANCER
  5. AI TAN [Suspect]
     Active Substance: RIVOCERANIB MESYLATE
     Indication: OVARIAN CANCER
     Dates: start: 20190520, end: 20190603
  6. OLAPARIB. [Suspect]
     Active Substance: OLAPARIB
     Indication: OVARIAN CANCER
     Route: 048
     Dates: start: 201703, end: 201801
  7. ELTROMBOPAG [Suspect]
     Active Substance: ELTROMBOPAG
     Indication: PLATELET COUNT DECREASED
     Dates: start: 2019
  8. OLAPARIB. [Suspect]
     Active Substance: OLAPARIB
     Indication: OVARIAN CANCER
     Route: 048
     Dates: start: 20190520, end: 20190528

REACTIONS (29)
  - Nausea [Recovering/Resolving]
  - Hypersplenism [Unknown]
  - Metastases to lymph nodes [Unknown]
  - Metastases to peritoneum [Unknown]
  - Acute myeloid leukaemia [Not Recovered/Not Resolved]
  - Gastrointestinal decompression [Unknown]
  - Respiratory tract infection [Unknown]
  - Off label use [Unknown]
  - Urinary tract infection [Unknown]
  - Hypoproteinaemia [Unknown]
  - Hyponatraemia [Unknown]
  - Pelvic fluid collection [Unknown]
  - Anaemia [Not Recovered/Not Resolved]
  - Vomiting [Recovering/Resolving]
  - Metastases to muscle [Unknown]
  - Lower gastrointestinal haemorrhage [Unknown]
  - Ovarian cancer [Fatal]
  - Ascites [Unknown]
  - Intentional product use issue [Unknown]
  - Drug ineffective [Unknown]
  - Arterial puncture [Unknown]
  - Coagulopathy [Unknown]
  - Thrombocytopenia [Not Recovered/Not Resolved]
  - Candida infection [Unknown]
  - Bladder catheterisation [Unknown]
  - Pleural effusion [Unknown]
  - Respiratory failure [Fatal]
  - Hypokalaemia [Unknown]
  - Central venous catheterisation [Unknown]

NARRATIVE: CASE EVENT DATE: 201703
